FAERS Safety Report 7509518-6 (Version None)
Quarter: 2011Q2

REPORT INFORMATION
  Report Type: 
  Country: None (occurrence: None)
  Receive Date: 20110527
  Receipt Date: 20110520
  Transmission Date: 20111010
  Serious: Yes (Disabling, Other)
  Sender: FDA-Public Use
  Company Number: US-PFIZER INC-2011110406

PATIENT
  Sex: Male

DRUGS (2)
  1. NEURONTIN [Suspect]
     Dosage: 300 MG, 3X/DAY
     Route: 048
  2. GEODON [Suspect]
     Dosage: 40 MG, 2X/DAY
     Route: 048

REACTIONS (2)
  - BACK DISORDER [None]
  - EMOTIONAL DISORDER [None]
